FAERS Safety Report 6943005-9 (Version None)
Quarter: 2010Q3

REPORT INFORMATION
  Report Type: 
  Country: None (occurrence: None)
  Receive Date: 20100826
  Receipt Date: 20100819
  Transmission Date: 20110219
  Serious: Yes (Other)
  Sender: FDA-Public Use
  Company Number: GB-TEVA-234005ISR

PATIENT
  Age: 52 Year
  Sex: Male
  Weight: 76 kg

DRUGS (2)
  1. BISOPROLOL [Suspect]
     Route: 048
     Dates: start: 20100317, end: 20100319
  2. NEBIVOLOL [Suspect]
     Route: 048
     Dates: start: 20100319, end: 20100408

REACTIONS (3)
  - PERIPHERAL COLDNESS [None]
  - RENAL IMPAIRMENT [None]
  - SKIN DISCOLOURATION [None]
